FAERS Safety Report 4826739-1 (Version None)
Quarter: 2005Q4

REPORT INFORMATION
  Report Type: 
  Country: None (occurrence: None)
  Receive Date: 20051111
  Receipt Date: 20051111
  Transmission Date: 20060501
  Serious: Yes (Disabling, Other)
  Sender: FDA-Public Use
  Company Number: None

PATIENT
  Age: 48 Year
  Sex: Female
  Weight: 58.9676 kg

DRUGS (5)
  1. LAMICTAL [Suspect]
     Indication: BIPOLAR DISORDER
  2. ALPRAZOLAM [Concomitant]
  3. TEMAZEPAM [Concomitant]
  4. LAMOTRIGINE [Concomitant]
  5. CARBAMAZEPINE [Concomitant]

REACTIONS (2)
  - BRUXISM [None]
  - TOOTH INJURY [None]
